FAERS Safety Report 10592022 (Version 2)
Quarter: 2016Q4

REPORT INFORMATION
  Report Type: Spontaneous
  Country: US (occurrence: US)
  Receive Date: 20141119
  Receipt Date: 20161123
  Transmission Date: 20170206
  Serious: Yes (Other)
  Sender: FDA-Public Use
  Company Number: US-RANBAXY-2014US-87963

PATIENT
  Age: 74 Year
  Sex: Female

DRUGS (1)
  1. OXCARBAZEPINE. [Suspect]
     Active Substance: OXCARBAZEPINE
     Indication: TRIGEMINAL NEURALGIA
     Dosage: 1800 MG, DAILY
     Route: 065

REACTIONS (3)
  - Inappropriate antidiuretic hormone secretion [Recovering/Resolving]
  - Somnolence [Unknown]
  - Dizziness [Unknown]
